FAERS Safety Report 21485386 (Version 1)
Quarter: 2022Q4

REPORT INFORMATION
  Report Type: Spontaneous
  Country: US (occurrence: None)
  Receive Date: 20221019
  Receipt Date: 20221019
  Transmission Date: 20230113
  Serious: Yes (Hospitalization)
  Sender: FDA-Public Use
  Company Number: None

PATIENT
  Age: 69 Year
  Sex: Male
  Weight: 85.0 kg

DRUGS (19)
  1. ERLEADA [Suspect]
     Active Substance: APALUTAMIDE
     Indication: Prostate cancer
     Dosage: FREQUENCY : DAILY;?
     Route: 048
  2. ADVAIR DISKUS [Concomitant]
     Active Substance: FLUTICASONE PROPIONATE\SALMETEROL XINAFOATE
  3. ASPIRIN [Concomitant]
     Active Substance: ASPIRIN
  4. VITAMINS [Concomitant]
     Active Substance: VITAMINS
  5. CETIRIZINE [Concomitant]
     Active Substance: CETIRIZINE HYDROCHLORIDE
  6. FISH OIL [Concomitant]
     Active Substance: FISH OIL
  7. GLUCAGON [Concomitant]
     Active Substance: GLUCAGON
  8. LATANOPROST [Concomitant]
     Active Substance: LATANOPROST
  9. LISINOPRIL [Concomitant]
     Active Substance: LISINOPRIL
  10. LUPRON [Concomitant]
     Active Substance: LEUPROLIDE ACETATE
  11. MELOXICAM [Concomitant]
     Active Substance: MELOXICAM
  12. METFORMIN [Concomitant]
     Active Substance: METFORMIN HYDROCHLORIDE
  13. NORCO [Concomitant]
     Active Substance: ACETAMINOPHEN\HYDROCODONE BITARTRATE
  14. OMEPRAZOLE [Concomitant]
     Active Substance: OMEPRAZOLE
  15. OXYCONTIN [Concomitant]
     Active Substance: OXYCODONE HYDROCHLORIDE
  16. PROAIR HFA [Concomitant]
     Active Substance: ALBUTEROL SULFATE
  17. ROSUVASTATIN [Concomitant]
     Active Substance: ROSUVASTATIN
  18. VITAMIN C [Concomitant]
     Active Substance: ASCORBIC ACID
  19. VITAMIN D3 [Concomitant]
     Active Substance: CHOLECALCIFEROL

REACTIONS (3)
  - Hospitalisation [None]
  - Chemotherapy [None]
  - Therapy interrupted [None]
